FAERS Safety Report 17253398 (Version 1)
Quarter: 2020Q1

REPORT INFORMATION
  Report Type: Spontaneous
  Country: AT (occurrence: AT)
  Receive Date: 20200109
  Receipt Date: 20200109
  Transmission Date: 20200409
  Serious: Yes (Other)
  Sender: FDA-Public Use
  Company Number: AT-ASTRAZENECA-2020SE00556

PATIENT
  Sex: Female

DRUGS (8)
  1. ASA [Suspect]
     Active Substance: ASPIRIN
     Route: 065
  2. ROSUVASTATIN. [Suspect]
     Active Substance: ROSUVASTATIN
     Dosage: 40.0MG UNKNOWN
     Route: 048
  3. EZETIMIB [Suspect]
     Active Substance: EZETIMIBE
     Route: 065
  4. AMLODIPIN [Suspect]
     Active Substance: AMLODIPINE BESYLATE
     Route: 065
  5. OTC MAGNESIUM SUPPLEMENTS [Concomitant]
     Indication: MUSCLE SPASMS
  6. ROSUVASTATIN. [Suspect]
     Active Substance: ROSUVASTATIN
     Dosage: 40.0MG UNKNOWN
     Route: 048
  7. CANDESARTAN. [Suspect]
     Active Substance: CANDESARTAN
     Route: 048
  8. EZETIMIB [Suspect]
     Active Substance: EZETIMIBE
     Route: 065

REACTIONS (4)
  - Muscle spasms [Unknown]
  - Pain in extremity [Unknown]
  - Peripheral arterial occlusive disease [Not Recovered/Not Resolved]
  - Treatment noncompliance [Recovered/Resolved]
